FAERS Safety Report 6075624-9 (Version None)
Quarter: 2009Q1

REPORT INFORMATION
  Report Type: 
  Country: None (occurrence: None)
  Receive Date: 20090212
  Receipt Date: 20090204
  Transmission Date: 20090719
  Serious: Yes (Death, Other)
  Sender: FDA-Public Use
  Company Number: US-PFIZER INC-2006023128

PATIENT
  Sex: Male
  Weight: 84 kg

DRUGS (2)
  1. BEXTRA [Suspect]
     Route: 048
     Dates: start: 20020726, end: 20021018
  2. VIOXX [Suspect]
     Indication: ARTHRALGIA
     Route: 048
     Dates: start: 20010501, end: 20020101

REACTIONS (1)
  - ACUTE MYOCARDIAL INFARCTION [None]
